FAERS Safety Report 20382713 (Version 1)
Quarter: 2022Q1

REPORT INFORMATION
  Report Type: Spontaneous
  Country: US (occurrence: US)
  Receive Date: 20220127
  Receipt Date: 20220127
  Transmission Date: 20220423
  Serious: No
  Sender: FDA-Public Use
  Company Number: ENDG21-00559

PATIENT
  Sex: Female

DRUGS (1)
  1. HYDROCODONE BITARTRATE AND ACETAMINOPHEN [Suspect]
     Active Substance: ACETAMINOPHEN\HYDROCODONE BITARTRATE
     Indication: Pain
     Dosage: 10MG/325MG UNKNOWN, UNKNOWN
     Route: 065

REACTIONS (6)
  - Contusion [Recovered/Resolved]
  - Tinnitus [Recovered/Resolved]
  - Peripheral swelling [Recovered/Resolved]
  - Product substitution issue [Recovered/Resolved]
  - Ill-defined disorder [Recovered/Resolved]
  - Urinary retention [Recovered/Resolved]
